FAERS Safety Report 23444309 (Version 3)
Quarter: 2024Q1

REPORT INFORMATION
  Report Type: Spontaneous
  Country: CN (occurrence: CN)
  Receive Date: 20240125
  Receipt Date: 20240201
  Transmission Date: 20240410
  Serious: Yes (Hospitalization)
  Sender: FDA-Public Use
  Company Number: CN-002147023-NVSC2023CN274936

PATIENT
  Sex: Male
  Weight: 60 kg

DRUGS (8)
  1. COSENTYX [Suspect]
     Active Substance: SECUKINUMAB
     Indication: Psoriasis
     Dosage: 2 DOSAGE FORM, QW (2 INJECTIONS/TIME)
     Route: 065
     Dates: start: 20231023
  2. COSENTYX [Suspect]
     Active Substance: SECUKINUMAB
     Dosage: 2 DOSAGE FORM, QW (2 INJECTIONS/TIME)
     Route: 065
  3. COSENTYX [Suspect]
     Active Substance: SECUKINUMAB
     Dosage: 2 DOSAGE FORM, QW (2 INJECTIONS/TIME)
     Route: 065
  4. COSENTYX [Suspect]
     Active Substance: SECUKINUMAB
     Dosage: 2 DOSAGE FORM, QW (2 INJECTIONS/TIME)
     Route: 065
     Dates: start: 20231113, end: 20231113
  5. IRBESARTAN [Concomitant]
     Active Substance: IRBESARTAN
     Indication: Hypertension
     Dosage: UNK (LONG TERM USE)
     Route: 048
  6. METOPROLOL [Concomitant]
     Active Substance: METOPROLOL
     Indication: Cardiac disorder
     Dosage: UNK (LONG TERM USE)
     Route: 048
  7. ASPIRIN [Concomitant]
     Active Substance: ASPIRIN
     Indication: Symptomatic treatment
     Route: 065
  8. CRESTOR [Concomitant]
     Active Substance: ROSUVASTATIN CALCIUM
     Indication: Hypercholesterolaemia
     Dosage: UNK
     Route: 048

REACTIONS (14)
  - Laryngopharyngitis [Recovered/Resolved]
  - Throat irritation [Recovered/Resolved]
  - Oropharyngeal pain [Recovered/Resolved]
  - Glossodynia [Recovering/Resolving]
  - Weight decreased [Unknown]
  - Hyperpyrexia [Recovered/Resolved]
  - Sleep disorder [Recovered/Resolved]
  - Thyroiditis subacute [Recovering/Resolving]
  - C-reactive protein increased [Unknown]
  - Disease recurrence [Unknown]
  - Psoriasis [Unknown]
  - Tonsillitis [Recovered/Resolved]
  - Oral herpes [Recovering/Resolving]
  - Toothache [Recovered/Resolved]

NARRATIVE: CASE EVENT DATE: 20231107
